FAERS Safety Report 21458235 (Version 2)
Quarter: 2022Q4

REPORT INFORMATION
  Report Type: Spontaneous
  Country: US (occurrence: US)
  Receive Date: 20221014
  Receipt Date: 20221111
  Transmission Date: 20230112
  Serious: No
  Sender: FDA-Public Use
  Company Number: US-GSKCCFUS-Case-01517736_AE-86177

PATIENT
  Age: 9 Year
  Sex: Female

DRUGS (1)
  1. FLOVENT HFA [Suspect]
     Active Substance: FLUTICASONE PROPIONATE
     Indication: Product used for unknown indication
     Dosage: 2.0 PUFF(S), BID

REACTIONS (6)
  - Viral upper respiratory tract infection [Unknown]
  - Asthma [Unknown]
  - Wrong technique in device usage process [Unknown]
  - Overdose [Unknown]
  - Product use issue [Unknown]
  - Product complaint [Unknown]

NARRATIVE: CASE EVENT DATE: 20221004
